FAERS Safety Report 8059385-X (Version None)
Quarter: 2012Q1

REPORT INFORMATION
  Report Type: 
  Country: None (occurrence: None)
  Receive Date: 20120119
  Receipt Date: 20120119
  Transmission Date: 20120608
  Serious: Yes (Life-Threatening)
  Sender: FDA-Public Use
  Company Number: None

PATIENT
  Age: 52 Year
  Sex: Female
  Weight: 53.5244 kg

DRUGS (1)
  1. SOLU-MEDROL [Suspect]
     Indication: RASH
     Dosage: 1 GRAM X1 IV
     Route: 042
     Dates: start: 20120115

REACTIONS (1)
  - RESPIRATORY DISORDER [None]
